FAERS Safety Report 9386475 (Version 2)
Quarter: 2013Q3

REPORT INFORMATION
  Report Type: Spontaneous
  Country: US (occurrence: US)
  Receive Date: 20130708
  Receipt Date: 20130729
  Transmission Date: 20140515
  Serious: Yes (Hospitalization)
  Sender: FDA-Public Use
  Company Number: US-BIOGENIDEC-2013BI058260

PATIENT
  Age: 64 Year
  Sex: Female
  Weight: 60 kg

DRUGS (9)
  1. TECFIDERA [Suspect]
     Indication: MULTIPLE SCLEROSIS
     Route: 048
  2. TECFIDERA [Suspect]
     Indication: MULTIPLE SCLEROSIS
     Route: 048
  3. CENTRUM TAB SILVER [Concomitant]
     Route: 048
  4. GABAPENTIN [Concomitant]
     Route: 048
  5. VITAMIN B-12 [Concomitant]
  6. FISH OIL CAP [Concomitant]
     Route: 048
  7. OSTEO BI -FLX TAB [Concomitant]
  8. CITRCAL+D [Concomitant]
  9. PROBIOTIC [Concomitant]

REACTIONS (3)
  - Chest pain [Recovered/Resolved]
  - Neck pain [Recovered/Resolved]
  - Headache [Unknown]
